FAERS Safety Report 11997348 (Version 1)
Quarter: 2016Q1

REPORT INFORMATION
  Report Type: Report from Study
  Country: US (occurrence: US)
  Receive Date: 20160203
  Receipt Date: 20160203
  Transmission Date: 20160526
  Serious: Yes (Hospitalization, Other)
  Sender: FDA-Public Use
  Company Number: US-AMGEN-USASL2016010553

PATIENT
  Age: 76 Year
  Sex: Female

DRUGS (1)
  1. ENBREL [Suspect]
     Active Substance: ETANERCEPT
     Indication: RHEUMATOID ARTHRITIS
     Dosage: 50 MG, UNK
     Route: 065
     Dates: start: 1998

REACTIONS (5)
  - Device issue [Unknown]
  - Vocal cord disorder [Unknown]
  - Surgery [Unknown]
  - Pain [Unknown]
  - Finger deformity [Unknown]

NARRATIVE: CASE EVENT DATE: 2004
